FAERS Safety Report 13661319 (Version 1)
Quarter: 2017Q2

REPORT INFORMATION
  Report Type: Spontaneous
  Country: US (occurrence: US)
  Receive Date: 20170616
  Receipt Date: 20170616
  Transmission Date: 20170830
  Serious: No
  Sender: FDA-Public Use
  Company Number: US-US WORLDMEDS, LLC-USW201612-000899

PATIENT
  Age: 55 Year
  Sex: Female

DRUGS (9)
  1. APOKYN [Suspect]
     Active Substance: APOMORPHINE HYDROCHLORIDE
     Indication: PARKINSON^S DISEASE
     Route: 058
     Dates: start: 20160526
  2. METHOCARBOMOL [Concomitant]
     Active Substance: METHOCARBAMOL
     Dates: start: 201605
  3. TRIMETHOZAMIDE [Concomitant]
  4. AZILECT [Concomitant]
     Active Substance: RASAGILINE MESYLATE
  5. CARBIDOPA/LEVODOPA [Concomitant]
     Active Substance: CARBIDOPA\LEVODOPA
     Dates: start: 2011
  6. NEUPRO [Concomitant]
     Active Substance: ROTIGOTINE
  7. ENTACOPONE [Concomitant]
     Dates: start: 201107
  8. CLONAZEPAM. [Concomitant]
     Active Substance: CLONAZEPAM
     Dates: start: 201605
  9. TRIHEXYPHENIDYL [Concomitant]
     Active Substance: TRIHEXYPHENIDYL
     Dates: start: 2011

REACTIONS (3)
  - Neck pain [Recovered/Resolved]
  - Gait disturbance [Recovered/Resolved]
  - Anxiety [Recovered/Resolved]

NARRATIVE: CASE EVENT DATE: 20161206
